FAERS Safety Report 16441321 (Version 1)
Quarter: 2019Q2

REPORT INFORMATION
  Report Type: Spontaneous
  Country: FR (occurrence: FR)
  Receive Date: 20190617
  Receipt Date: 20190617
  Transmission Date: 20190711
  Serious: Yes (Other)
  Sender: FDA-Public Use
  Company Number: FR-PROVELL PHARMACEUTICALS-2069270

PATIENT
  Age: 70 Year
  Sex: Female
  Weight: 58 kg

DRUGS (1)
  1. EUTHYROX [Suspect]
     Active Substance: LEVOTHYROXINE SODIUM
     Indication: THYROIDECTOMY
     Route: 048
     Dates: start: 20170310, end: 20171006

REACTIONS (6)
  - Product formulation issue [Recovered/Resolved]
  - Vertigo [Unknown]
  - Blood thyroid stimulating hormone decreased [Not Recovered/Not Resolved]
  - Pain in extremity [Not Recovered/Not Resolved]
  - Fatigue [Unknown]
  - Insomnia [Unknown]

NARRATIVE: CASE EVENT DATE: 201703
